FAERS Safety Report 8115800-4 (Version None)
Quarter: 2012Q1

REPORT INFORMATION
  Report Type: 
  Country: None (occurrence: None)
  Receive Date: 20120206
  Receipt Date: 20120130
  Transmission Date: 20120608
  Serious: Yes (Other)
  Sender: FDA-Public Use
  Company Number: JP-ROCHE-1025143

PATIENT
  Sex: Female
  Weight: 56 kg

DRUGS (22)
  1. AVASTIN [Suspect]
     Indication: LARGE CELL LUNG CANCER METASTATIC
     Dosage: DOSAGE IS UNCERTAIN.
     Route: 041
     Dates: start: 20110921, end: 20110921
  2. REBAMIPIDE [Concomitant]
     Dosage: SINGLE USE
     Route: 048
     Dates: start: 20110919, end: 20111003
  3. CARBOPLATIN [Concomitant]
     Route: 041
     Dates: start: 20111101, end: 20111101
  4. LOXOPROFEN [Concomitant]
     Dosage: SINGLE USE
     Route: 048
     Dates: start: 20110919, end: 20111003
  5. FAMOTIDINE [Concomitant]
     Route: 048
     Dates: start: 20110920
  6. ZOFRAN [Concomitant]
     Indication: PREMEDICATION
     Dosage: SINGLE USE
     Route: 048
     Dates: start: 20110920, end: 20111214
  7. CARBOPLATIN [Concomitant]
     Indication: LARGE CELL LUNG CANCER METASTATIC
     Route: 041
     Dates: start: 20110921, end: 20110921
  8. PACLITAXEL [Concomitant]
     Route: 041
     Dates: start: 20111013, end: 20111013
  9. PACLITAXEL [Concomitant]
     Route: 041
     Dates: start: 20111125, end: 20111125
  10. CARBOPLATIN [Concomitant]
     Route: 041
     Dates: start: 20111212, end: 20111212
  11. AVASTIN [Suspect]
     Route: 041
     Dates: start: 20111212, end: 20111212
  12. CEFMETAZOLE SODIUM [Concomitant]
     Route: 042
     Dates: start: 20110920, end: 20110927
  13. RESTAMIN [Concomitant]
     Indication: PREMEDICATION
     Dosage: SINGLE USE
     Route: 048
     Dates: start: 20110920, end: 20111212
  14. AVASTIN [Suspect]
     Route: 041
     Dates: start: 20111101, end: 20111101
  15. PACLITAXEL [Concomitant]
     Route: 041
     Dates: start: 20111212, end: 20111212
  16. VITAMEDIN [Concomitant]
     Indication: PREMEDICATION
     Dosage: SINGLE USE
     Route: 042
     Dates: start: 20110921, end: 20111212
  17. PACLITAXEL [Concomitant]
     Route: 041
     Dates: start: 20111101, end: 20111108
  18. BROTIZOLAM [Concomitant]
     Indication: INSOMNIA
     Dosage: SINGLE USE
     Route: 048
     Dates: start: 20110916, end: 20110928
  19. GRANISETRON [Concomitant]
     Indication: PREMEDICATION
     Dosage: SINGLE USE
     Route: 041
     Dates: start: 20110921, end: 20111212
  20. FAMOTIDINE [Concomitant]
     Indication: PREMEDICATION
     Dosage: SINGLE USE
     Route: 042
     Dates: start: 20110921, end: 20111212
  21. PACLITAXEL [Concomitant]
     Indication: LARGE CELL LUNG CANCER METASTATIC
     Route: 041
     Dates: start: 20110921, end: 20110928
  22. DEXAMETHASONE SODIUM PHOSPHATE [Concomitant]
     Indication: PREMEDICATION
     Dosage: SINGLE USE
     Route: 042
     Dates: start: 20110921, end: 20111212

REACTIONS (5)
  - UPPER RESPIRATORY TRACT INFLAMMATION [None]
  - COLITIS ISCHAEMIC [None]
  - ABDOMINAL PAIN [None]
  - CONSTIPATION [None]
  - DIARRHOEA [None]
